FAERS Safety Report 25630243 (Version 1)
Quarter: 2025Q3

REPORT INFORMATION
  Report Type: Spontaneous
  Country: US (occurrence: US)
  Receive Date: 20250801
  Receipt Date: 20250801
  Transmission Date: 20251020
  Serious: No
  Sender: AUROBINDO
  Company Number: US-AUROBINDO-AUR-APL-2024-060679

PATIENT
  Sex: Female

DRUGS (2)
  1. ERTAPENEM [Suspect]
     Active Substance: ERTAPENEM
     Indication: Product used for unknown indication
     Route: 065
  2. CYCLOSPORINE [Concomitant]
     Active Substance: CYCLOSPORINE
     Indication: Product used for unknown indication
     Route: 065

REACTIONS (1)
  - Hypertransaminasaemia [Unknown]
